FAERS Safety Report 23297222 (Version 1)
Quarter: 2023Q4

REPORT INFORMATION
  Report Type: Report from Study
  Country: IT (occurrence: IT)
  Receive Date: 20231214
  Receipt Date: 20231214
  Transmission Date: 20240109
  Serious: Yes (Other)
  Sender: FDA-Public Use
  Company Number: None

PATIENT
  Age: 57 Year
  Weight: 74 kg

DRUGS (2)
  1. ETOPOSIDE [Suspect]
     Active Substance: ETOPOSIDE
     Indication: Testicular seminoma (pure)
     Dosage: ADMINISTRATION OF CISPLATIN + ETOPOSIDE + BLEOMYCIN ACCORDING TO PEB SCHEME?ETOPOSIDE 188MG
     Route: 042
     Dates: start: 20230828, end: 20231027
  2. CISPLATIN [Suspect]
     Active Substance: CISPLATIN
     Indication: Testicular seminoma (pure)
     Dosage: ADMINISTRATION OF CISPLATIN + ETOPOSIDE + BLEOMYCIN ACCORDING TO PEB SCHEME?CISPLATIN 37.60MG
     Route: 042
     Dates: start: 20230828, end: 20231027

REACTIONS (1)
  - Neutropenia [Not Recovered/Not Resolved]

NARRATIVE: CASE EVENT DATE: 20231107
